FAERS Safety Report 14210817 (Version 2)
Quarter: 2018Q2

REPORT INFORMATION
  Report Type: Spontaneous
  Country: FR (occurrence: FR)
  Receive Date: 20171121
  Receipt Date: 20180426
  Transmission Date: 20180711
  Serious: Yes (Hospitalization)
  Sender: FDA-Public Use
  Company Number: FR-009507513-1711FRA006222

PATIENT
  Age: 10 Month
  Sex: Female
  Weight: 8 kg

DRUGS (1)
  1. CELESTENE [Suspect]
     Active Substance: BETAMETHASONE
     Indication: LARYNGITIS
     Dosage: 75 DROPS/KG/DAY
     Route: 048
     Dates: start: 20170915

REACTIONS (3)
  - Hypophagia [Unknown]
  - Abnormal behaviour [Recovering/Resolving]
  - Blood pressure increased [Unknown]

NARRATIVE: CASE EVENT DATE: 20171016
